FAERS Safety Report 8594863 (Version 3)
Quarter: 2013Q3

REPORT INFORMATION
  Report Type: Spontaneous
  Country: US (occurrence: US)
  Receive Date: 20120604
  Receipt Date: 20130731
  Transmission Date: 20140515
  Serious: No
  Sender: FDA-Public Use
  Company Number: US-ASTRAZENECA-2012SE10528

PATIENT
  Age: 48 Year
  Sex: Female
  Weight: 67.3 kg

DRUGS (6)
  1. CRESTOR [Suspect]
     Indication: HYPERLIPIDAEMIA
     Route: 048
     Dates: start: 20120106, end: 20120109
  2. CRESTOR [Suspect]
     Indication: HYPERLIPIDAEMIA
     Dosage: 1/2 A PILL, UNKNOWN FREQUENCY
     Route: 048
  3. CRESTOR [Suspect]
     Indication: HYPERLIPIDAEMIA
     Route: 048
  4. CRESTOR [Suspect]
     Indication: HYPERLIPIDAEMIA
     Route: 048
  5. PRAVACHOL [Concomitant]
  6. ZOCOR [Concomitant]

REACTIONS (12)
  - Paraesthesia [Recovered/Resolved]
  - Pain [Unknown]
  - Sensation of heaviness [Unknown]
  - Ocular hyperaemia [Unknown]
  - Hypoaesthesia [Unknown]
  - Hypoaesthesia [Unknown]
  - Pain in extremity [Unknown]
  - Headache [Unknown]
  - Myalgia [Recovered/Resolved]
  - Pain in extremity [Unknown]
  - Myalgia [Unknown]
  - Intentional drug misuse [Unknown]
